FAERS Safety Report 11534290 (Version 2)
Quarter: 2015Q3

REPORT INFORMATION
  Report Type: Other
  Country: IE (occurrence: IE)
  Receive Date: 20150922
  Receipt Date: 20150925
  Transmission Date: 20151125
  Serious: Yes (Other)
  Sender: FDA-Public Use
  Company Number: IE-ENDO PHARMACEUTICALS INC.-2015-002900

PATIENT
  Sex: Male
  Weight: 81.64 kg

DRUGS (2)
  1. AVEED [Suspect]
     Active Substance: TESTOSTERONE UNDECANOATE
     Route: 065
  2. AVEED [Suspect]
     Active Substance: TESTOSTERONE UNDECANOATE
     Indication: BLOOD TESTOSTERONE DECREASED
     Route: 065

REACTIONS (8)
  - Mental impairment [Unknown]
  - Dark circles under eyes [Unknown]
  - Fluid retention [Unknown]
  - Fatigue [Unknown]
  - Acne [Unknown]
  - Feeling abnormal [Unknown]
  - Malaise [Unknown]
  - Gynaecomastia [Unknown]
